FAERS Safety Report 6644909-7 (Version None)
Quarter: 2010Q1

REPORT INFORMATION
  Report Type: 
  Country: None (occurrence: None)
  Receive Date: 20100322
  Receipt Date: 20100308
  Transmission Date: 20100710
  Serious: Yes (Death, Hospitalization, Other)
  Sender: FDA-Public Use
  Company Number: US-TYCO HEALTHCARE/MALLINCKRODT-T200901313

PATIENT
  Sex: Male

DRUGS (20)
  1. OPTIMARK [Suspect]
     Indication: ANGIOGRAM
     Dosage: UNK
     Dates: start: 20040126, end: 20040126
  2. OPTIMARK [Suspect]
     Dosage: UNK
     Dates: start: 20040312, end: 20040312
  3. MAGNEVIST [Suspect]
     Indication: NUCLEAR MAGNETIC RESONANCE IMAGING
     Dosage: 20 ML, SINGLE
     Dates: start: 20021220, end: 20021220
  4. MAGNEVIST [Suspect]
     Dosage: 20 ML, SINGLE
     Dates: start: 20030513, end: 20030513
  5. OMNISCAN [Suspect]
     Indication: NUCLEAR MAGNETIC RESONANCE IMAGING
     Dosage: UNK
     Dates: start: 20031201, end: 20031201
  6. LISINOPRIL [Concomitant]
     Indication: BLOOD PRESSURE MANAGEMENT
     Dosage: 10 MG, QD
  7. COREG [Concomitant]
     Indication: BLOOD PRESSURE MANAGEMENT
     Dosage: 25 MG, QD
  8. NIFEDIPINE [Concomitant]
     Indication: BLOOD PRESSURE MANAGEMENT
     Dosage: 30 MG, QD
  9. ASPIRIN [Concomitant]
     Indication: ANTICOAGULANT THERAPY
     Dosage: 81 MG, QD
  10. PLAVIX [Concomitant]
     Indication: ANTICOAGULANT THERAPY
     Dosage: 75 MG, QD
  11. FOSRENOL [Concomitant]
     Indication: BLOOD PHOSPHORUS INCREASED
     Dosage: 500  MG, 2 TABS WITH EACH MEAL
  12. SODIUM BICARBONATE [Concomitant]
     Indication: ACID BASE BALANCE
     Dosage: 650 MG, BID
  13. LORTAB [Concomitant]
     Indication: PAIN
     Dosage: 1-2 TABS Q6HRS
  14. TYLENOL (CAPLET) [Concomitant]
     Indication: PAIN
     Dosage: 55 MG, PRN
  15. NEPHRO-VITE                        /02375601/ [Concomitant]
     Dosage: H.S
  16. COQ10 [Concomitant]
     Indication: SUPPLEMENTATION THERAPY
     Dosage: 50 MG, UNK
  17. GYMNEMA SYLVESTRE [Concomitant]
     Indication: BLOOD GLUCOSE FLUCTUATION
     Dosage: 400 MG, QD
  18. EPOGEN [Concomitant]
  19. IRON [Concomitant]
     Indication: MINERAL SUPPLEMENTATION
  20. VITAMINS                           /90003601/ [Concomitant]

REACTIONS (16)
  - ABDOMINAL PAIN [None]
  - ACUTE CORONARY SYNDROME [None]
  - ASCITES [None]
  - ATRIAL FIBRILLATION [None]
  - BACTERAEMIA [None]
  - CARDIAC FAILURE CONGESTIVE [None]
  - CEREBROVASCULAR ACCIDENT [None]
  - DECUBITUS ULCER [None]
  - DIZZINESS [None]
  - HEADACHE [None]
  - NEPHROGENIC SYSTEMIC FIBROSIS [None]
  - OFF LABEL USE [None]
  - PERICARDIAL EFFUSION [None]
  - PLEURAL EFFUSION [None]
  - PROCEDURAL HYPOTENSION [None]
  - PULMONARY OEDEMA [None]
